FAERS Safety Report 15144129 (Version 1)
Quarter: 2018Q3

REPORT INFORMATION
  Report Type: Spontaneous
  Country: US (occurrence: US)
  Receive Date: 20180713
  Receipt Date: 20180713
  Transmission Date: 20181010
  Serious: Yes (Hospitalization)
  Sender: FDA-Public Use
  Company Number: US-UNITED THERAPEUTICS-UNT-2018-010157

PATIENT
  Sex: Female
  Weight: 54.38 kg

DRUGS (2)
  1. REVATIO [Concomitant]
     Active Substance: SILDENAFIL CITRATE
     Indication: PRODUCT USED FOR UNKNOWN INDICATION
     Route: 065
  2. REMODULIN [Suspect]
     Active Substance: TREPROSTINIL
     Indication: PULMONARY ARTERIAL HYPERTENSION
     Dosage: 0.03 ?G/KG, CONTINUING
     Route: 041
     Dates: start: 20180412

REACTIONS (7)
  - Aura [Unknown]
  - Syncope [Unknown]
  - Asthenia [Unknown]
  - Dizziness [Unknown]
  - Drug administration error [Unknown]
  - Paraesthesia [Unknown]
  - Complication associated with device [Unknown]

NARRATIVE: CASE EVENT DATE: 2018
